FAERS Safety Report 22791199 (Version 2)
Quarter: 2024Q2

REPORT INFORMATION
  Report Type: Report from Study
  Country: IT (occurrence: IT)
  Receive Date: 20230807
  Receipt Date: 20240518
  Transmission Date: 20240716
  Serious: Yes (Hospitalization, Other)
  Sender: FDA-Public Use
  Company Number: None

PATIENT
  Age: 69 Year
  Sex: Male

DRUGS (2)
  1. VENETOCLAX [Suspect]
     Active Substance: VENETOCLAX
     Indication: Acute myeloid leukaemia
     Dosage: 400 MG/DIE RIDOTTI A 200 MG/DIE DAL 18/07/2023
     Route: 048
     Dates: start: 20230704, end: 20230720
  2. AZACITIDINE [Suspect]
     Active Substance: AZACITIDINE
     Indication: Acute myeloid leukaemia
     Dosage: 75 MG/MQ/DIE PER SETTE GIORNI
     Route: 058
     Dates: start: 20230704, end: 20230713

REACTIONS (3)
  - Acinetobacter test positive [Recovered/Resolved]
  - Enterococcus test positive [Unknown]
  - Pneumonitis [Recovered/Resolved]

NARRATIVE: CASE EVENT DATE: 20230723
